FAERS Safety Report 24650442 (Version 1)
Quarter: 2024Q4

REPORT INFORMATION
  Report Type: Spontaneous
  Country: US (occurrence: US)
  Receive Date: 20241122
  Receipt Date: 20241122
  Transmission Date: 20250115
  Serious: No
  Sender: ABBVIE
  Company Number: US-ABBVIE-5998370

PATIENT
  Age: 75 Year
  Sex: Female

DRUGS (1)
  1. BOTOX [Suspect]
     Active Substance: ONABOTULINUMTOXINA
     Indication: Essential tremor
     Dosage: TIME INTERVAL: AS NECESSARY
     Route: 030

REACTIONS (6)
  - Ophthalmic migraine [Not Recovered/Not Resolved]
  - Neck pain [Not Recovered/Not Resolved]
  - Back pain [Not Recovered/Not Resolved]
  - Vision blurred [Unknown]
  - Injection site pain [Unknown]
  - Off label use [Unknown]
